FAERS Safety Report 25678893 (Version 1)
Quarter: 2025Q3

REPORT INFORMATION
  Report Type: Report from Study
  Country: JP (occurrence: JP)
  Receive Date: 20250814
  Receipt Date: 20250814
  Transmission Date: 20251021
  Serious: Yes (Other)
  Sender: SENTYNL THERAPEUTICS
  Company Number: JP-Sentynl-20250073

PATIENT
  Age: 13 Year
  Sex: Male

DRUGS (1)
  1. ZOKINVY [Suspect]
     Active Substance: LONAFARNIB
     Indication: Progeria

REACTIONS (1)
  - Renal impairment [Unknown]
